FAERS Safety Report 10424684 (Version 1)
Quarter: 2014Q3

REPORT INFORMATION
  Report Type: Spontaneous
  Country: IL (occurrence: IL)
  Receive Date: 20140902
  Receipt Date: 20140902
  Transmission Date: 20150326
  Serious: Yes (Death, Other)
  Sender: FDA-Public Use
  Company Number: PHHY2014IL107728

PATIENT
  Age: 65 Year
  Sex: Female

DRUGS (4)
  1. METHYLPREDNISOLONE [Suspect]
     Active Substance: METHYLPREDNISOLONE
     Indication: PULMONARY ALVEOLAR HAEMORRHAGE
     Route: 042
  2. CYCLOPHOSPHAMIDE. [Suspect]
     Active Substance: CYCLOPHOSPHAMIDE
     Route: 042
  3. PREDNISOLONE. [Suspect]
     Active Substance: PREDNISOLONE
  4. IMMUNOGLOBULINS [Suspect]
     Active Substance: HUMAN IMMUNOGLOBULIN G
     Route: 042

REACTIONS (5)
  - Fatigue [Fatal]
  - Pyrexia [Fatal]
  - Sepsis [Fatal]
  - Multi-organ failure [Unknown]
  - Treatment failure [Recovered/Resolved]
